FAERS Safety Report 10258385 (Version 2)
Quarter: 2014Q2

REPORT INFORMATION
  Report Type: Spontaneous
  Country: JP (occurrence: JP)
  Receive Date: 20140625
  Receipt Date: 20140625
  Transmission Date: 20141212
  Serious: Yes (Hospitalization, Other)
  Sender: FDA-Public Use
  Company Number: JP-SA-2013-08107

PATIENT
  Age: 66 Year
  Sex: Male

DRUGS (1)
  1. IMMUCYST [Suspect]
     Indication: BLADDER CANCER STAGE 0, WITH CANCER IN SITU
     Route: 043
     Dates: start: 20120315, end: 20120705

REACTIONS (1)
  - Contracted bladder [Recovered/Resolved]
